FAERS Safety Report 9383151 (Version 2)
Quarter: 2013Q3

REPORT INFORMATION
  Report Type: Report from Study
  Country: CA (occurrence: CA)
  Receive Date: 20130704
  Receipt Date: 20130724
  Transmission Date: 20140515
  Serious: Yes (Hospitalization)
  Sender: FDA-Public Use
  Company Number: CA-CELGENEUS-028-C4047-12100075

PATIENT
  Age: 84 Year
  Sex: Female
  Weight: 62.4 kg

DRUGS (32)
  1. CC-4047 [Suspect]
     Indication: PLASMA CELL MYELOMA
     Dosage: 4 MILLIGRAM
     Route: 065
     Dates: start: 20120814
  2. CC-4047 [Suspect]
     Dosage: 3 MILLIGRAM
     Route: 065
     Dates: start: 20120914, end: 20120925
  3. DEXAMETHASONE [Suspect]
     Indication: PLASMA CELL MYELOMA
     Dosage: 20 MILLIGRAM
     Route: 065
     Dates: start: 20120814
  4. DEXAMETHASONE [Suspect]
     Dosage: 20 MILLIGRAM
     Route: 065
     Dates: start: 20120914, end: 20120925
  5. REVLIMID [Suspect]
     Indication: PLASMA CELL MYELOMA
     Route: 048
     Dates: start: 201004, end: 201007
  6. REVLIMID [Suspect]
     Route: 048
     Dates: start: 20120125, end: 201207
  7. ASPIRIN [Concomitant]
     Indication: THROMBOSIS PROPHYLAXIS
     Dosage: 81 MILLIGRAM
     Route: 048
     Dates: start: 201201, end: 20120909
  8. PACKED RED BLOOD CELLS [Concomitant]
     Indication: HAEMOGLOBIN DECREASED
     Dosage: 3 UNITS
     Route: 041
     Dates: start: 20121010
  9. TRAMADOL [Concomitant]
     Indication: PRODUCT USED FOR UNKNOWN INDICATION
     Route: 065
  10. PROCHLORPERAZINE [Concomitant]
     Indication: NAUSEA
     Dosage: 5-10MG
     Route: 050
     Dates: start: 20121010
  11. PROCHLORPERAZINE [Concomitant]
     Indication: VOMITING
     Dosage: 5-10MG
     Route: 048
     Dates: start: 20121010
  12. ALBUTAMOL [Concomitant]
     Indication: PRODUCT USED FOR UNKNOWN INDICATION
     Route: 055
     Dates: start: 20121010
  13. CEFAZOLINE [Concomitant]
     Indication: PRODUCT USED FOR UNKNOWN INDICATION
     Dosage: 1000 MILLIGRAM
     Route: 041
     Dates: start: 20121010, end: 20121011
  14. METRONIDAZOLE [Concomitant]
     Indication: PRODUCT USED FOR UNKNOWN INDICATION
     Dosage: 500 MILLIGRAM
     Route: 041
     Dates: start: 20121010, end: 20121011
  15. PAMIDRONATE [Concomitant]
     Indication: PRODUCT USED FOR UNKNOWN INDICATION
     Dosage: 30 MILLIGRAM
     Route: 041
     Dates: start: 20120315
  16. PULMICORT [Concomitant]
     Indication: ASTHMA
     Dosage: 720 MICROGRAM
     Route: 045
     Dates: start: 200910
  17. RABEPRAZOLE [Concomitant]
     Indication: DYSPEPSIA
     Dosage: 20 MILLIGRAM
     Route: 048
     Dates: start: 20120731, end: 20120827
  18. RANITIDINE [Concomitant]
     Indication: DYSPEPSIA
     Dosage: 150 MILLIGRAM
     Route: 048
     Dates: start: 20120825
  19. QUININE [Concomitant]
     Indication: MUSCLE SPASMS
     Dosage: 300 MILLIGRAM
     Route: 048
     Dates: start: 2009
  20. ACETAMINOPHEN [Concomitant]
     Indication: PULMONARY EMBOLISM
     Dosage: 2600 MILLIGRAM
     Route: 048
     Dates: start: 20121010, end: 20121015
  21. PANTOPRAZOLE [Concomitant]
     Indication: DYSPEPSIA
     Dosage: 40 MILLIGRAM
     Route: 041
     Dates: start: 20121010
  22. POTASSIUM CHLORIDE [Concomitant]
     Indication: PRODUCT USED FOR UNKNOWN INDICATION
     Route: 065
     Dates: start: 20121011
  23. ACETAMINOPHEN/CODEINE [Concomitant]
     Indication: VOMITING
     Dosage: 1-2
     Route: 048
     Dates: start: 20121010
  24. ACETAMINOPHEN/CODEINE [Concomitant]
     Indication: PAIN
     Dosage: 650 MILLIGRAM
     Route: 048
     Dates: start: 20121015
  25. ACETAMINOPHEN/CODEINE [Concomitant]
     Dosage: 500-1000MG
     Route: 048
     Dates: start: 20121010
  26. HYDROMORPHONE [Concomitant]
     Indication: BREAKTHROUGH PAIN
     Dosage: 0.1-0.3MG
     Route: 041
     Dates: start: 20121010
  27. HYDROMORPHONE [Concomitant]
     Dosage: 1-2MG
     Route: 048
     Dates: start: 20121010
  28. NALBUPHINE [Concomitant]
     Indication: PRODUCT USED FOR UNKNOWN INDICATION
     Dosage: 5 MILLIGRAM
     Route: 041
     Dates: start: 20121010
  29. NALOXONE [Concomitant]
     Indication: PRODUCT USED FOR UNKNOWN INDICATION
     Dosage: .2 MILLIGRAM
     Route: 041
     Dates: start: 20121010
  30. ONDANSETRON [Concomitant]
     Indication: PRODUCT USED FOR UNKNOWN INDICATION
     Route: 041
     Dates: start: 20121010
  31. ONDANSETRON [Concomitant]
     Dosage: 4-8MG
     Route: 041
     Dates: start: 20121010
  32. ONDANSETRON [Concomitant]
     Dosage: 4 MILLIGRAM
     Route: 048
     Dates: start: 20121010

REACTIONS (1)
  - Adenocarcinoma of colon [Recovered/Resolved with Sequelae]
